FAERS Safety Report 25129374 (Version 2)
Quarter: 2025Q2

REPORT INFORMATION
  Report Type: Spontaneous
  Country: US (occurrence: US)
  Receive Date: 20250327
  Receipt Date: 20250411
  Transmission Date: 20250716
  Serious: Yes (Hospitalization)
  Sender: DR REDDYS
  Company Number: US-DRL-USA-USA/2025/03/004498

PATIENT
  Age: 52 Year
  Sex: Female

DRUGS (1)
  1. LENALIDOMIDE [Suspect]
     Active Substance: LENALIDOMIDE
     Indication: Product used for unknown indication
     Route: 065
     Dates: start: 20250211

REACTIONS (1)
  - Hospitalisation [Unknown]
